FAERS Safety Report 9106879 (Version 2)
Quarter: 2013Q2

REPORT INFORMATION
  Report Type: Report from Study
  Country: JP (occurrence: JP)
  Receive Date: 20130221
  Receipt Date: 20130425
  Transmission Date: 20140414
  Serious: Yes (Life-Threatening, Hospitalization, Disabling, Other)
  Sender: FDA-Public Use
  Company Number: JP-JNJFOC-20130210382

PATIENT
  Age: 38 Year
  Sex: Male
  Weight: 61.3 kg

DRUGS (5)
  1. PREZISTA [Suspect]
     Indication: HIV INFECTION
     Route: 048
     Dates: start: 20110304, end: 20120301
  2. NORVIR [Concomitant]
     Indication: HIV INFECTION
     Route: 048
     Dates: start: 20110304, end: 20120301
  3. TRUVADA [Concomitant]
     Indication: HIV INFECTION
     Route: 048
     Dates: start: 20110304, end: 20120301
  4. SERTRALINE HYDROCHLORIDE [Concomitant]
     Route: 065
  5. DULOXETINE HYDROCHLORIDE [Concomitant]
     Route: 065
     Dates: start: 20110510

REACTIONS (4)
  - Liver disorder [Not Recovered/Not Resolved]
  - Hypoxic-ischaemic encephalopathy [Not Recovered/Not Resolved]
  - Suicide attempt [Recovered/Resolved with Sequelae]
  - Cardiac arrest [Unknown]
